FAERS Safety Report 10776760 (Version 1)
Quarter: 2015Q1

REPORT INFORMATION
  Report Type: Spontaneous
  Country: US (occurrence: None)
  Receive Date: 20150205
  Receipt Date: 20150205
  Transmission Date: 20150721
  Serious: Yes (Hospitalization)
  Sender: FDA-Public Use
  Company Number: None

PATIENT
  Age: 69 Year
  Sex: Male
  Weight: 63.6 kg

DRUGS (1)
  1. WARFARIN [Suspect]
     Active Substance: WARFARIN
     Dates: end: 20141210

REACTIONS (9)
  - Asthenia [None]
  - Diarrhoea [None]
  - Gastrointestinal haemorrhage [None]
  - Fatigue [None]
  - Vertigo [None]
  - Electrocardiogram ST segment depression [None]
  - Anticoagulation drug level below therapeutic [None]
  - International normalised ratio increased [None]
  - Haemoglobin decreased [None]

NARRATIVE: CASE EVENT DATE: 20141207
